FAERS Safety Report 12316872 (Version 2)
Quarter: 2016Q3

REPORT INFORMATION
  Report Type: Spontaneous
  Country: IT (occurrence: IT)
  Receive Date: 20160429
  Receipt Date: 20160718
  Transmission Date: 20161109
  Serious: Yes (Hospitalization)
  Sender: FDA-Public Use
  Company Number: IT-ROCHE-1674197

PATIENT
  Age: 57 Year
  Sex: Female

DRUGS (5)
  1. CARBOLITHIUM [Suspect]
     Active Substance: LITHIUM CARBONATE
     Indication: PANIC ATTACK
     Dosage: ^300 MG HARD CAPSULES^ 50 CAPSULES
     Route: 048
  2. LAROXYL [Suspect]
     Active Substance: AMITRIPTYLINE
     Indication: DEPRESSION
     Dosage: ^25 MG COATED TABLETS^ 25 TABLETS
     Route: 048
  3. TRILAFON [Suspect]
     Active Substance: PERPHENAZINE
     Indication: PANIC ATTACK
     Dosage: 8 MG COATED TABLETS^ 20 TABLETS
     Route: 048
  4. RIVOTRIL [Suspect]
     Active Substance: CLONAZEPAM
     Indication: DEPRESSION
     Dosage: ^2.5 MG/ML ORAL DROPS, SOLUTION^ 10 ML BOTTLE
     Route: 048
  5. NOZINAN [Suspect]
     Active Substance: LEVOMEPROMAZINE
     Indication: PANIC ATTACK
     Dosage: ^25 MG FILM-COATED TABLETS^ 20 TABLETS PERIOD: 1 YEAR
     Route: 048

REACTIONS (5)
  - Confusional state [Recovered/Resolved]
  - Gait disturbance [Recovered/Resolved]
  - Abdominal tenderness [Recovered/Resolved]
  - Pyrexia [Recovered/Resolved]
  - Abdominal distension [Recovered/Resolved]

NARRATIVE: CASE EVENT DATE: 20151123
